FAERS Safety Report 8276719-1 (Version None)
Quarter: 2012Q2

REPORT INFORMATION
  Report Type: 
  Country: None (occurrence: None)
  Receive Date: 20120412
  Receipt Date: 20120412
  Transmission Date: 20120825
  Serious: Yes (Other)
  Sender: FDA-Public Use
  Company Number: None

PATIENT
  Sex: Female
  Weight: 99.79 kg

DRUGS (2)
  1. CYMBALTA [Suspect]
     Indication: FIBROMYALGIA
     Dosage: 20.0 MG
     Route: 048
  2. CYMBALTA [Concomitant]
     Dosage: 60
     Route: 048

REACTIONS (44)
  - RESTLESSNESS [None]
  - FLATULENCE [None]
  - URTICARIA [None]
  - FLUSHING [None]
  - ARTHRALGIA [None]
  - MOOD SWINGS [None]
  - MUSCULAR WEAKNESS [None]
  - MUSCLE TWITCHING [None]
  - VOMITING [None]
  - DIZZINESS [None]
  - HEADACHE [None]
  - THINKING ABNORMAL [None]
  - CONSTIPATION [None]
  - RASH [None]
  - INFLUENZA LIKE ILLNESS [None]
  - VENTRICULAR EXTRASYSTOLES [None]
  - DYSKINESIA [None]
  - CONTUSION [None]
  - AKATHISIA [None]
  - PAIN [None]
  - SUICIDAL IDEATION [None]
  - WEIGHT DECREASED [None]
  - MYALGIA [None]
  - ANXIETY [None]
  - EMOTIONAL DISORDER [None]
  - INSOMNIA [None]
  - PRURITUS [None]
  - NERVOUSNESS [None]
  - VISION BLURRED [None]
  - DISTURBANCE IN ATTENTION [None]
  - MEMORY IMPAIRMENT [None]
  - DYSPEPSIA [None]
  - HOT FLUSH [None]
  - ERECTILE DYSFUNCTION [None]
  - BREATH ODOUR [None]
  - COORDINATION ABNORMAL [None]
  - LIBIDO DECREASED [None]
  - DRY MOUTH [None]
  - DYSGEUSIA [None]
  - PARAESTHESIA [None]
  - AGITATION [None]
  - ABDOMINAL DISTENSION [None]
  - CHEST DISCOMFORT [None]
  - NAUSEA [None]
